FAERS Safety Report 6386924-7 (Version None)
Quarter: 2009Q4

REPORT INFORMATION
  Report Type: 
  Country: None (occurrence: None)
  Receive Date: 20091002
  Receipt Date: 20090929
  Transmission Date: 20100525
  Serious: Yes (Hospitalization)
  Sender: FDA-Public Use
  Company Number: US-ROXANE LABORATORIES, INC.-2009-RO-01015RO

PATIENT
  Sex: Female
  Weight: 59 kg

DRUGS (9)
  1. PREDNISONE TAB [Suspect]
     Indication: RHEUMATOID ARTHRITIS
     Dosage: 2 MG
     Route: 048
     Dates: start: 19970101
  2. PREDNISONE TAB [Suspect]
     Indication: PSORIATIC ARTHROPATHY
  3. METHOTREXATE [Suspect]
     Indication: PSORIATIC ARTHROPATHY
  4. HUMIRA [Suspect]
     Indication: RHEUMATOID ARTHRITIS
     Route: 058
     Dates: start: 20030528, end: 20070306
  5. HUMIRA [Suspect]
     Route: 058
     Dates: start: 20070404
  6. AMITRIPTYLINE HYDROCHLORIDE [Concomitant]
     Indication: FIBROMYALGIA
     Dosage: 50 MG
     Route: 048
  7. CELECOXIB [Concomitant]
     Indication: RHEUMATOID ARTHRITIS
     Dosage: 400 MG
     Route: 048
  8. HYDROCHLOROTHIAZIDE [Concomitant]
     Indication: HYPERTENSION
     Route: 048
  9. PROPACET 100 [Concomitant]

REACTIONS (6)
  - DRUG INEFFECTIVE [None]
  - INFLUENZA [None]
  - MUSCULOSKELETAL STIFFNESS [None]
  - PAIN [None]
  - PNEUMONIA [None]
  - RESPIRATORY TRACT INFECTION BACTERIAL [None]
